FAERS Safety Report 4698348-9 (Version None)
Quarter: 2005Q2

REPORT INFORMATION
  Report Type: 
  Country: None (occurrence: None)
  Receive Date: 20050623
  Receipt Date: 20050614
  Transmission Date: 20051028
  Serious: Yes (Hospitalization)
  Sender: FDA-Public Use
  Company Number: US-ROCHE-407891

PATIENT
  Age: 46 Year
  Sex: Male

DRUGS (2)
  1. PEGASYS [Suspect]
     Route: 058
     Dates: start: 20040813, end: 20050613
  2. COPEGUS [Suspect]
     Route: 048
     Dates: start: 20040813, end: 20050613

REACTIONS (5)
  - HYPERHIDROSIS [None]
  - LOSS OF CONSCIOUSNESS [None]
  - ORAL PAIN [None]
  - PALLOR [None]
  - SYNCOPE VASOVAGAL [None]
